FAERS Safety Report 16377884 (Version 1)
Quarter: 2019Q2

REPORT INFORMATION
  Report Type: Spontaneous
  Country: NO (occurrence: NO)
  Receive Date: 20190531
  Receipt Date: 20190531
  Transmission Date: 20190711
  Serious: Yes (Hospitalization)
  Sender: FDA-Public Use
  Company Number: NO-JNJFOC-20190534604

PATIENT
  Age: 91 Year
  Sex: Male

DRUGS (9)
  1. RHINOCORT [Concomitant]
     Active Substance: BUDESONIDE
     Dosage: 1 INHALATION IN BOTH NOSTRILS IN THE MORNING
     Route: 055
  2. ALBYL-E [Concomitant]
     Active Substance: ASPIRIN\MAGNESIUM OXIDE
     Dosage: IN THE MORNING??ADDITIONAL INFO: ACETYLSALICYLIC ACID: 75MG
     Route: 065
  3. IMBRUVICA [Suspect]
     Active Substance: IBRUTINIB
     Indication: CHRONIC LYMPHOCYTIC LEUKAEMIA
     Route: 048
     Dates: start: 20190424, end: 20190501
  4. BURINEX [Concomitant]
     Active Substance: BUMETANIDE
     Dosage: 1 MG
     Route: 065
  5. METOPROLOL. [Concomitant]
     Active Substance: METOPROLOL
     Route: 065
  6. LERKANIDIPIN ACTAVIS [Concomitant]
     Dosage: IN THE MORNING
     Route: 065
  7. BUDESONIDE W/FORMOTEROL [Concomitant]
     Active Substance: BUDESONIDE\FORMOTEROL
     Dosage: 1 INHALATION EVERY MORNING
     Route: 065
  8. TRIOBE [Concomitant]
     Dosage: IN THE MORNING
     Route: 065
  9. ZYLORIC [Concomitant]
     Active Substance: ALLOPURINOL
     Dosage: IN THE MORNING
     Route: 065

REACTIONS (5)
  - Atrial fibrillation [Recovering/Resolving]
  - Incorrect dose administered [Unknown]
  - Cardiac failure [Recovering/Resolving]
  - Off label use [Unknown]
  - Fluid overload [Recovering/Resolving]

NARRATIVE: CASE EVENT DATE: 20190424
